FAERS Safety Report 8791406 (Version 1)
Quarter: 2012Q4

REPORT INFORMATION
  Report Type: Spontaneous
  Country: DK (occurrence: None)
  Receive Date: 20120912
  Receipt Date: 20120912
  Transmission Date: 20130627
  Serious: Yes (Other)
  Sender: FDA-Public Use
  Company Number: 2012MA010841

PATIENT
  Age: 50 Year
  Sex: Male

DRUGS (6)
  1. METFORMIN HYDROCHLORIDE [Suspect]
     Indication: DIABETES
     Route: 048
     Dates: start: 19980514, end: 20030207
  2. CANDESARTAN [Concomitant]
  3. SIMVASTATIN [Concomitant]
  4. QUININE [Concomitant]
  5. BECONASE AQUEOUS [Concomitant]
  6. VITAMIN AND MINERAL SUPPLEMENT [Concomitant]

REACTIONS (3)
  - Abdominal distension [None]
  - Weight increased [None]
  - Myocardial infarction [None]
